FAERS Safety Report 6255417-X (Version None)
Quarter: 2009Q3

REPORT INFORMATION
  Report Type: 
  Country: None (occurrence: None)
  Receive Date: 20090702
  Receipt Date: 20090626
  Transmission Date: 20100115
  Serious: Yes (Other)
  Sender: FDA-Public Use
  Company Number: CA-SP-2009-02742

PATIENT
  Age: 9 Year
  Sex: Female

DRUGS (1)
  1. TUBERSOL [Suspect]
     Indication: TUBERCULIN TEST
     Dosage: NOT REPORTED
     Route: 065

REACTIONS (8)
  - ANAPHYLACTIC REACTION [None]
  - ANXIETY [None]
  - CHEST DISCOMFORT [None]
  - DYSPNOEA [None]
  - OEDEMA PERIPHERAL [None]
  - ORAL DISCOMFORT [None]
  - RASH GENERALISED [None]
  - URTICARIA [None]
